FAERS Safety Report 19757544 (Version 1)
Quarter: 2021Q3

REPORT INFORMATION
  Report Type: Spontaneous
  Country: FR (occurrence: FR)
  Receive Date: 20210828
  Receipt Date: 20210828
  Transmission Date: 20211014
  Serious: Yes (Life-Threatening, Hospitalization)
  Sender: FDA-Public Use
  Company Number: FR-ACCORD-236581

PATIENT
  Age: 78 Year
  Sex: Male
  Weight: 69.2 kg

DRUGS (7)
  1. ATENOLOL/ATENOLOL HYDROCHLORIDE [Concomitant]
     Active Substance: ATENOLOL HYDROCHLORIDE
  2. OXALIPLATIN. [Suspect]
     Active Substance: OXALIPLATIN
     Indication: OESOPHAGEAL CARCINOMA
     Route: 042
     Dates: start: 20210622
  3. INEGY [Concomitant]
     Active Substance: EZETIMIBE\SIMVASTATIN
     Dosage: STRENGTH 10 MG / 20 MG
  4. ASPIRIN PROTECT [Concomitant]
     Active Substance: ASPIRIN
     Dosage: STRENGTH 100 MG
  5. FLUOROURACIL. [Suspect]
     Active Substance: FLUOROURACIL
     Indication: OESOPHAGEAL CARCINOMA
     Route: 042
     Dates: start: 20210622
  6. PARIET [Concomitant]
     Active Substance: RABEPRAZOLE SODIUM
     Dosage: STRENGTH 20 MG
  7. PERINDOPRIL [Concomitant]
     Active Substance: PERINDOPRIL

REACTIONS (1)
  - Acute myocardial infarction [Recovering/Resolving]

NARRATIVE: CASE EVENT DATE: 20210623
